FAERS Safety Report 4423357-4 (Version None)
Quarter: 2004Q3

REPORT INFORMATION
  Report Type: 
  Country: None (occurrence: None)
  Receive Date: 20040806
  Receipt Date: 20040727
  Transmission Date: 20050211
  Serious: Yes (Hospitalization)
  Sender: FDA-Public Use
  Company Number: FLUV00304002536

PATIENT
  Age: 39 Year
  Sex: Male

DRUGS (10)
  1. LUVOX [Suspect]
     Indication: DEPRESSION
     Dosage: 225 MG DAILY PO
     Route: 048
  2. ANAFRANIL [Suspect]
     Indication: ILL-DEFINED DISORDER
     Dosage: 150 MG DAILY PO
     Route: 048
  3. RISPERDAL [Suspect]
     Indication: ILL-DEFINED DISORDER
     Dosage: 4 NG DAILY PO
     Route: 048
  4. ZOLPIDEM TARTRATE [Concomitant]
  5. ROHYPNOL (FLUNITRAZEPAM) [Concomitant]
  6. DEPAS (ETIZOLAM) [Concomitant]
  7. AKINETON [Concomitant]
  8. GLYBURIDE [Concomitant]
  9. BASEN (VOGLIBOSE) [Concomitant]
  10. CHLORPROMAZINE HCL [Concomitant]

REACTIONS (1)
  - NEUROLEPTIC MALIGNANT SYNDROME [None]
